FAERS Safety Report 17785384 (Version 1)
Quarter: 2020Q2

REPORT INFORMATION
  Report Type: Spontaneous
  Country: AR (occurrence: AR)
  Receive Date: 20200514
  Receipt Date: 20200514
  Transmission Date: 20200714
  Serious: Yes (Other)
  Sender: FDA-Public Use
  Company Number: AR-PFIZER INC-2020190265

PATIENT
  Age: 57 Year
  Sex: Male

DRUGS (1)
  1. SUTENT [Suspect]
     Active Substance: SUNITINIB MALATE
     Indication: METASTATIC RENAL CELL CARCINOMA
     Dosage: UNK, 2X/DAY
     Dates: start: 20190912, end: 2020

REACTIONS (2)
  - Neoplasm progression [Unknown]
  - Skeletal injury [Unknown]

NARRATIVE: CASE EVENT DATE: 20200207
